FAERS Safety Report 5045604-0 (Version None)
Quarter: 2006Q3

REPORT INFORMATION
  Report Type: 
  Country: None (occurrence: None)
  Receive Date: 20060707
  Receipt Date: 20060628
  Transmission Date: 20061208
  Serious: Yes (Hospitalization)
  Sender: FDA-Public Use
  Company Number: ZA-ROCHE-453564

PATIENT
  Sex: Female
  Weight: 77 kg

DRUGS (5)
  1. INTERFERON ALFA-2A [Suspect]
     Indication: NON-HODGKIN'S LYMPHOMA
     Dosage: UNIT = MU
     Route: 058
     Dates: start: 20030812
  2. RITUXIMAB [Suspect]
     Indication: NON-HODGKIN'S LYMPHOMA
     Route: 042
     Dates: start: 20030812
  3. LACTULOSE [Concomitant]
     Dates: start: 20030812
  4. PARACETAMOL [Concomitant]
     Dates: start: 20030312
  5. WARFARIN SODIUM [Concomitant]
     Dates: start: 20030731

REACTIONS (2)
  - INSOMNIA [None]
  - UPPER RESPIRATORY TRACT INFECTION [None]
